FAERS Safety Report 10096237 (Version 1)
Quarter: 2014Q2

REPORT INFORMATION
  Report Type: Spontaneous
  Country: US (occurrence: None)
  Receive Date: 20140410
  Receipt Date: 20140410
  Transmission Date: 20141212
  Serious: Yes (Hospitalization)
  Sender: FDA-Public Use
  Company Number: 2013-US-004602

PATIENT
  Age: 72 Year
  Sex: Male

DRUGS (1)
  1. FAZACLO ODT (CLOZAPINE) TABLET, 100MG [Suspect]
     Route: 048
     Dates: start: 20100323

REACTIONS (1)
  - Pneumonia [None]
